FAERS Safety Report 19798916 (Version 2)
Quarter: 2022Q2

REPORT INFORMATION
  Report Type: Spontaneous
  Country: US (occurrence: US)
  Receive Date: 20210907
  Receipt Date: 20220413
  Transmission Date: 20220720
  Serious: Yes (Hospitalization)
  Sender: FDA-Public Use
  Company Number: US-RECORDATI RARE DISEASE INC.-2021003539

PATIENT
  Age: 13 Year
  Sex: Male
  Weight: 52.6 kg

DRUGS (5)
  1. DACTINOMYCIN [Suspect]
     Active Substance: DACTINOMYCIN
     Indication: Product used for unknown indication
     Dosage: 0.5 MILLIGRAM/KILOGRAM, CYCLICAL
     Route: 065
     Dates: start: 20210621
  2. TEMSIROLIMUS [Suspect]
     Active Substance: TEMSIROLIMUS
     Indication: Product used for unknown indication
     Dosage: 15 MILLIGRAM/SQ. METER, CYCLICAL
     Route: 065
     Dates: start: 20210621, end: 20210719
  3. CAMPTOSAR [Suspect]
     Active Substance: IRINOTECAN HYDROCHLORIDE
     Indication: Product used for unknown indication
     Dosage: 50 MILLIGRAM/SQ. METER, CYCLICAL
     Route: 065
     Dates: start: 20210712
  4. VINCRISTINE SULFATE [Suspect]
     Active Substance: VINCRISTINE SULFATE
     Indication: Product used for unknown indication
     Dosage: 1.5 MILLIGRAM/SQ. METER, CYCLICAL
     Route: 065
     Dates: start: 20210621
  5. CYCLOPHOSPHAMIDE [Suspect]
     Active Substance: CYCLOPHOSPHAMIDE
     Indication: Product used for unknown indication
     Dosage: 1200 MILLIGRAM/SQ. METER, CYCLICAL
     Route: 065
     Dates: start: 20210621

REACTIONS (3)
  - Appendicitis [Recovered/Resolved]
  - Colitis [Unknown]
  - Diarrhoea [Recovering/Resolving]

NARRATIVE: CASE EVENT DATE: 20210720
